FAERS Safety Report 10090694 (Version 1)
Quarter: 2014Q2

REPORT INFORMATION
  Report Type: Spontaneous
  Country: SE (occurrence: SE)
  Receive Date: 20140421
  Receipt Date: 20140421
  Transmission Date: 20141212
  Serious: Yes (Other)
  Sender: FDA-Public Use
  Company Number: SE-SHIRE-SE201401469

PATIENT
  Age: 54 Year
  Sex: Male

DRUGS (1)
  1. ELVANSE [Suspect]
     Indication: PRODUCT USED FOR UNKNOWN INDICATION
     Dosage: 70 MG, UNKNOWN
     Route: 048

REACTIONS (9)
  - Pharyngeal oedema [Unknown]
  - Dermatitis allergic [Unknown]
  - Erythema [Unknown]
  - Oedema [Unknown]
  - Swollen tongue [Unknown]
  - Amnesia [Unknown]
  - Tremor [Unknown]
  - Palpitations [Unknown]
  - Off label use [Unknown]
